FAERS Safety Report 14993381 (Version 2)
Quarter: 2018Q4

REPORT INFORMATION
  Report Type: Report from Study
  Country: JP (occurrence: JP)
  Receive Date: 20180610
  Receipt Date: 20181218
  Transmission Date: 20190204
  Serious: Yes (Hospitalization)
  Sender: FDA-Public Use
  Company Number: JP-BEH-2018091351

PATIENT
  Age: 10 Year
  Sex: Female
  Weight: 45 kg

DRUGS (38)
  1. FRESH FROZEN PLASMA [Concomitant]
     Active Substance: HUMAN PLASMA
     Dosage: 240 ML, UNK
     Route: 065
     Dates: start: 20180420
  2. HUMAN SERUM ALBUMIN [Concomitant]
     Active Substance: ALBUMIN HUMAN
     Dosage: UNK
     Route: 065
     Dates: start: 20180502, end: 20180502
  3. RED BLOOD CELLS, LEUCOCYTE DEPLETED [Concomitant]
     Active Substance: HUMAN RED BLOOD CELL
     Dosage: UNK
     Route: 065
     Dates: start: 20180419
  4. WARFARIN [Concomitant]
     Active Substance: WARFARIN
     Indication: THROMBOSIS PROPHYLAXIS
     Dosage: 1 MG, QD
     Route: 048
     Dates: start: 20180430, end: 20180508
  5. FRESH FROZEN PLASMA [Concomitant]
     Active Substance: HUMAN PLASMA
     Dosage: 240 ML, UNK
     Route: 065
     Dates: start: 20180417
  6. FRESH FROZEN PLASMA [Concomitant]
     Active Substance: HUMAN PLASMA
     Dosage: 240 ML, UNK
     Route: 065
     Dates: start: 20180509
  7. IRRADIATED RED CELLS CONCENTRATES-LEUKOCYTES [Concomitant]
     Dosage: UNK
     Route: 065
     Dates: start: 20180510
  8. NEUART [Concomitant]
     Active Substance: ANTITHROMBIN III HUMAN
     Dosage: 1500 IU, QD
     Route: 065
     Dates: start: 20180421, end: 20180421
  9. WARFARIN [Concomitant]
     Active Substance: WARFARIN
     Indication: MYOCARDITIS
  10. FRESH FROZEN PLASMA [Concomitant]
     Active Substance: HUMAN PLASMA
     Dosage: 240 ML, UNK
     Route: 065
     Dates: start: 20180507
  11. FRESH FROZEN PLASMA [Concomitant]
     Active Substance: HUMAN PLASMA
     Dosage: 240 ML, UNK
     Route: 065
     Dates: start: 20180510
  12. IRRADIATED RED CELLS CONCENTRATES-LEUKOCYTES [Concomitant]
     Dosage: UNK
     Route: 065
     Dates: start: 20180419
  13. IRRADIATED RED CELLS CONCENTRATES-LEUKOCYTES [Concomitant]
     Dosage: UNK
     Route: 065
     Dates: start: 20180425
  14. ALBUMINAR-25 [Concomitant]
     Active Substance: ALBUMIN HUMAN
     Dosage: UNK
     Route: 065
     Dates: start: 20180419, end: 20180419
  15. BERIPLEX P/N [Suspect]
     Active Substance: COAGULATION FACTOR IX HUMAN\COAGULATION FACTOR VII HUMAN\COAGULATION FACTOR X HUMAN\PROTEIN C\PROTEIN S HUMAN\PROTHROMBIN
     Indication: HAEMOSTASIS
     Dosage: 3000 IU, TOT
     Route: 042
     Dates: start: 20180416
  16. FRESH FROZEN PLASMA [Concomitant]
     Active Substance: HUMAN PLASMA
     Dosage: 240 ML, UNK
     Route: 065
     Dates: start: 20180508
  17. IRRADIATED RED CELLS CONCENTRATES-LEUKOCYTES [Concomitant]
     Dosage: UNK
     Route: 065
     Dates: start: 20180416
  18. HUMAN SERUM ALBUMIN [Concomitant]
     Active Substance: ALBUMIN HUMAN
     Dosage: UNK
     Route: 065
     Dates: start: 20180426, end: 20180426
  19. HUMAN SERUM ALBUMIN [Concomitant]
     Active Substance: ALBUMIN HUMAN
     Dosage: UNK
     Route: 065
     Dates: start: 20180507, end: 20180507
  20. FRESH FROZEN PLASMA [Concomitant]
     Active Substance: HUMAN PLASMA
     Dosage: 240 ML, UNK
     Route: 065
     Dates: start: 20180416
  21. PLATELET CONCENTRATE(IRRADIATED) [Concomitant]
     Dosage: UNK
     Route: 065
     Dates: start: 20180416
  22. ALBUMINAR-25 [Concomitant]
     Active Substance: ALBUMIN HUMAN
     Indication: PRODUCT USED FOR UNKNOWN INDICATION
     Dosage: UNK
     Route: 065
     Dates: start: 20180418, end: 20180418
  23. IRRADIATED RED CELLS CONCENTRATES-LEUKOCYTES [Concomitant]
     Dosage: UNK
     Route: 065
     Dates: start: 20180420
  24. IRRADIATED RED CELLS CONCENTRATES-LEUKOCYTES [Concomitant]
     Dosage: UNK
     Route: 065
     Dates: start: 20180502
  25. PLATELET CONCENTRATE(IRRADIATED) [Concomitant]
     Dosage: UNK
     Route: 065
     Dates: start: 20180416, end: 20180416
  26. HUMAN SERUM ALBUMIN [Concomitant]
     Active Substance: ALBUMIN HUMAN
     Dosage: UNK
     Route: 065
     Dates: start: 20180417, end: 20180417
  27. HUMAN SERUM ALBUMIN [Concomitant]
     Active Substance: ALBUMIN HUMAN
     Dosage: UNK
     Route: 065
     Dates: start: 20180422, end: 20180422
  28. ALBUMINAR-5 [Concomitant]
     Active Substance: ALBUMIN HUMAN
     Indication: PRODUCT USED FOR UNKNOWN INDICATION
     Dosage: UNK
     Route: 065
     Dates: start: 20180510, end: 20180510
  29. IRRADIATED RED CELLS CONCENTRATES-LEUKOCYTES [Concomitant]
     Dosage: UNK
     Route: 065
     Dates: start: 20180424
  30. HUMAN SERUM ALBUMIN [Concomitant]
     Active Substance: ALBUMIN HUMAN
     Dosage: UNK
     Route: 065
     Dates: start: 20180503, end: 20180503
  31. RED BLOOD CELLS, LEUCOCYTE DEPLETED [Concomitant]
     Active Substance: HUMAN RED BLOOD CELL
     Dosage: UNK
     Route: 065
     Dates: start: 20180505
  32. FRESH FROZEN PLASMA [Concomitant]
     Active Substance: HUMAN PLASMA
     Dosage: 240 ML, UNK
     Route: 065
     Dates: start: 20180419
  33. IRRADIATED RED CELLS CONCENTRATES-LEUKOCYTES [Concomitant]
     Dosage: UNK
     Route: 065
     Dates: start: 20180417
  34. IRRADIATED RED CELLS CONCENTRATES-LEUKOCYTES [Concomitant]
     Dosage: UNK
     Route: 065
     Dates: start: 20180422
  35. IRRADIATED RED CELLS CONCENTRATES-LEUKOCYTES [Concomitant]
     Dosage: UNK
     Route: 065
     Dates: start: 20180506
  36. PLATELET CONCENTRATE(IRRADIATED) [Concomitant]
     Dosage: UNK
     Route: 065
     Dates: start: 20180419
  37. HUMAN SERUM ALBUMIN [Concomitant]
     Active Substance: ALBUMIN HUMAN
     Dosage: UNK
     Route: 065
     Dates: start: 20180430, end: 20180430
  38. RED BLOOD CELLS, LEUCOCYTE DEPLETED [Concomitant]
     Active Substance: HUMAN RED BLOOD CELL
     Dosage: UNK
     Route: 065
     Dates: start: 20180416

REACTIONS (1)
  - Thrombosis in device [Recovering/Resolving]

NARRATIVE: CASE EVENT DATE: 20180423
